FAERS Safety Report 10830435 (Version 6)
Quarter: 2020Q3

REPORT INFORMATION
  Report Type: Report from Study
  Country: US (occurrence: US)
  Receive Date: 20150219
  Receipt Date: 20200923
  Transmission Date: 20201102
  Serious: Yes (Hospitalization, Other)
  Sender: FDA-Public Use
  Company Number: US-SANOFI-AVENTIS-2013SA008362

PATIENT

DRUGS (4)
  1. TERIFLUNOMIDE. [Suspect]
     Active Substance: TERIFLUNOMIDE
     Indication: MULTIPLE SCLEROSIS
     Dosage: 14 MG,QD
     Route: 048
     Dates: start: 20130117, end: 20150116
  2. TERIFLUNOMIDE. [Suspect]
     Active Substance: TERIFLUNOMIDE
     Dosage: 7 MG, QD
     Route: 048
     Dates: start: 20200914
  3. TERIFLUNOMIDE. [Suspect]
     Active Substance: TERIFLUNOMIDE
     Dosage: 14 MG, QD
     Route: 048
     Dates: end: 20190901
  4. TERIFLUNOMIDE. [Suspect]
     Active Substance: TERIFLUNOMIDE
     Dosage: 14 MG,QD
     Route: 048
     Dates: start: 20150206, end: 201809

REACTIONS (20)
  - Joint injury [Unknown]
  - Peripheral artery stenosis [Unknown]
  - Bladder disorder [Recovered/Resolved]
  - Vaginal haemorrhage [Recovered/Resolved]
  - Sleep disorder [Recovered/Resolved]
  - Gait disturbance [Unknown]
  - Spinal stenosis [Unknown]
  - Sciatica [Not Recovered/Not Resolved]
  - Diarrhoea [Unknown]
  - Miliaria [Not Recovered/Not Resolved]
  - Drug ineffective [Unknown]
  - Loss of consciousness [Unknown]
  - Osteoporosis [Unknown]
  - Abdominal pain upper [Recovered/Resolved]
  - Fall [Unknown]
  - Fall [Unknown]
  - Dysstasia [Unknown]
  - Weight bearing difficulty [Unknown]
  - Back pain [Recovered/Resolved]
  - Product dose omission issue [Unknown]

NARRATIVE: CASE EVENT DATE: 201301
